FAERS Safety Report 4767682-6 (Version None)
Quarter: 2005Q3

REPORT INFORMATION
  Report Type: 
  Country: None (occurrence: None)
  Receive Date: 20050912
  Receipt Date: 20050826
  Transmission Date: 20060218
  Serious: Yes (Death)
  Sender: FDA-Public Use
  Company Number: PHBS2005BE12451

PATIENT
  Sex: Male

DRUGS (1)
  1. VISUDYNE [Suspect]
     Indication: MACULAR DEGENERATION
     Dates: start: 20050301, end: 20050301

REACTIONS (3)
  - HAEMORRHAGE [None]
  - LUNG NEOPLASM MALIGNANT [None]
  - PULMONARY FIBROSIS [None]
